FAERS Safety Report 26007744 (Version 1)
Quarter: 2025Q4

REPORT INFORMATION
  Report Type: Spontaneous
  Country: US (occurrence: US)
  Receive Date: 20251106
  Receipt Date: 20251106
  Transmission Date: 20260117
  Serious: Yes (Life-Threatening, Hospitalization)
  Sender: NOVARTIS
  Company Number: US-002147023-NVSC2025US149476

PATIENT
  Age: 82 Year
  Sex: Male
  Weight: 70.4 kg

DRUGS (20)
  1. CLOFAZIMINE [Suspect]
     Active Substance: CLOFAZIMINE
     Indication: Mycobacterial infection
     Dosage: 50 MG, QD (TAKE 2 CAPSULES BY MOUTH DAILY (WITH BREAKFAST))
     Route: 048
     Dates: start: 20250904
  2. MESTINON [Concomitant]
     Active Substance: PYRIDOSTIGMINE BROMIDE
     Indication: Product used for unknown indication
     Dosage: 60 MG, QID
     Route: 048
     Dates: start: 20250508
  3. XARELTO [Concomitant]
     Active Substance: RIVAROXABAN
     Indication: Deep vein thrombosis
     Dosage: 20 MG, QD
     Route: 048
     Dates: start: 20250528
  4. CRESTOR [Concomitant]
     Active Substance: ROSUVASTATIN CALCIUM
     Indication: Product used for unknown indication
     Dosage: 10 MG, QD
     Route: 048
  5. SENOKOT [Concomitant]
     Active Substance: SENNOSIDES
     Indication: Product used for unknown indication
     Dosage: 8.6 MG
     Route: 048
     Dates: start: 20250508
  6. TOPAMAX [Concomitant]
     Active Substance: TOPIRAMATE
     Indication: Product used for unknown indication
     Dosage: 100 MG
     Route: 048
     Dates: start: 20250508
  7. ZITHROMAX [Concomitant]
     Active Substance: AZITHROMYCIN DIHYDRATE
     Indication: Infection
     Dosage: 500 MG
     Route: 048
     Dates: start: 20250902
  8. CYMBALTA [Concomitant]
     Active Substance: DULOXETINE HYDROCHLORIDE
     Indication: Product used for unknown indication
     Dosage: 60 MG
     Route: 048
     Dates: start: 20250508
  9. LASIX [Concomitant]
     Active Substance: FUROSEMIDE
     Indication: Product used for unknown indication
     Dosage: 20 MG, QD
     Route: 048
     Dates: start: 20250509
  10. APRESOLINE HYDROCHLORIDE [Concomitant]
     Active Substance: HYDRALAZINE HYDROCHLORIDE
     Indication: Product used for unknown indication
     Dosage: 10 MG, QID
     Route: 048
     Dates: start: 20250917
  11. LEVAQUIN [Concomitant]
     Active Substance: LEVOFLOXACIN
     Indication: Infection
     Dosage: 750 MG (TAKE 1 TABLET BY MOUTH DAILY FOR 6 DOSES)
     Route: 048
     Dates: start: 20250918, end: 20250924
  12. TOPROL XL [Concomitant]
     Active Substance: METOPROLOL SUCCINATE
     Indication: Product used for unknown indication
     Dosage: 50 MG, QD (24 HR TABLET)
     Route: 048
     Dates: start: 20250509
  13. MYCOSTATIN [Concomitant]
     Active Substance: NYSTATIN
     Indication: Oral candidiasis
     Dosage: UNK (100,000 UNITS/ML, TAKE 5 MLS BY MOUTH 4 TIMES DAILY FOR 7 DAYS)
     Route: 048
     Dates: start: 20250917, end: 20250924
  14. NUZYRA [Concomitant]
     Active Substance: OMADACYCLINE
     Indication: Bacterial infection
     Dosage: 150 MG, QD (TAKE 2 TABLETS BY MOUTH EVERY MORNING)
     Route: 048
     Dates: start: 20250902
  15. NUZYRA [Concomitant]
     Active Substance: OMADACYCLINE
     Dosage: 150 MG, QD (TAKE 2 TABLETS BY MOUTH EVERY MORNING)
     Route: 048
     Dates: start: 20250918
  16. ZOFRAN [Concomitant]
     Active Substance: ONDANSETRON HYDROCHLORIDE
     Indication: Nausea
     Dosage: 4 MG, Q8H (DISINTEGRATING,TAKE 1 TABLET BY MOUTH EVERY 8 HOURS AS NEEDED)
     Route: 048
     Dates: start: 20250831
  17. ZOFRAN [Concomitant]
     Active Substance: ONDANSETRON HYDROCHLORIDE
     Indication: Vomiting
     Dosage: 4 MG, Q8H (DISINTEGRATING,TAKE 1 TABLET BY MOUTH EVERY 8 HOURS AS NEEDED)
     Route: 048
     Dates: start: 20250917
  18. PERCOCET [Concomitant]
     Active Substance: ACETAMINOPHEN\OXYCODONE HYDROCHLORIDE
     Indication: Pain
     Dosage: UNK, BID (10-325 MG, TAKE 1 TABLET BY MOUTH 2 TIMES DAILY AS NEEDED)
     Route: 048
     Dates: start: 20250831
  19. KLOR-CON [Concomitant]
     Active Substance: POTASSIUM CHLORIDE
     Indication: Product used for unknown indication
     Dosage: UNK, BID (10 MEQ CR, TAKE 1 TABLET BY MOUTH 2 TIMES DAILY)
     Route: 048
     Dates: start: 20250831
  20. DELTASONE [Concomitant]
     Active Substance: PREDNISONE
     Indication: Product used for unknown indication
     Dosage: 20 MG, QD (TAKE 1 TABLET BY MOUTH DAILY FOR 5 DAYS, THEN 0.5 TABLETS DAILY FOR 30 DAYS.)
     Route: 048

REACTIONS (24)
  - Septic shock [Recovered/Resolved]
  - Mental disorder [Unknown]
  - Acute kidney injury [Recovered/Resolved]
  - Urinary tract infection [Unknown]
  - Metabolic encephalopathy [Recovered/Resolved]
  - Asthenia [Unknown]
  - Myasthenia gravis [Unknown]
  - Mycobacterium abscessus infection [Unknown]
  - Pain [Unknown]
  - Atrial fibrillation [Unknown]
  - Hypertension [Unknown]
  - Osteomyelitis [Unknown]
  - Hyperlipidaemia [Unknown]
  - Immunodeficiency [Unknown]
  - Deep vein thrombosis [Unknown]
  - Hypokalaemia [Unknown]
  - Hypoxia [Unknown]
  - Wound [Unknown]
  - Lactic acidosis [Unknown]
  - Ulcer [Unknown]
  - Acute respiratory failure [Unknown]
  - Leukocytosis [Unknown]
  - Dysphagia [Unknown]
  - Left ventricular enlargement [Unknown]

NARRATIVE: CASE EVENT DATE: 20250909
